FAERS Safety Report 8876795 (Version 2)
Quarter: 2013Q2

REPORT INFORMATION
  Report Type: Spontaneous
  Country: US (occurrence: None)
  Receive Date: 20120426
  Receipt Date: 20120703
  Transmission Date: 20140414
  Serious: Yes (Other)
  Sender: FDA-Public Use
  Company Number: PHEH2012US003821

PATIENT
  Age: 58 Year
  Sex: Female
  Weight: 53.5 kg

DRUGS (1)
  1. GILENYA [Suspect]
     Indication: MULTIPLE SCLEROSIS
     Route: 048
     Dates: start: 20120208, end: 20120220

REACTIONS (5)
  - Disturbance in attention [None]
  - Headache [None]
  - Fatigue [None]
  - Vision blurred [None]
  - Stress [None]
